FAERS Safety Report 18959348 (Version 1)
Quarter: 2021Q1

REPORT INFORMATION
  Report Type: Report from Study
  Country: US (occurrence: US)
  Receive Date: 20210302
  Receipt Date: 20210302
  Transmission Date: 20210420
  Serious: Yes (Life-Threatening, Other)
  Sender: FDA-Public Use
  Company Number: US-BAYER-2021-086326

PATIENT
  Age: 67 Year
  Sex: Male
  Weight: 103.4 kg

DRUGS (2)
  1. WARFARIN [Suspect]
     Active Substance: WARFARIN
     Dosage: UNK
  2. ASPIRIN 81 MG [Suspect]
     Active Substance: ASPIRIN
     Dosage: 81 MG

REACTIONS (3)
  - Cerebral haemorrhage [None]
  - Haemorrhage intracranial [None]
  - Labelled drug-drug interaction medication error [None]
